FAERS Safety Report 7186069-2 (Version None)
Quarter: 2010Q4

REPORT INFORMATION
  Report Type: 
  Country: None (occurrence: None)
  Receive Date: 20101222
  Receipt Date: 20100614
  Transmission Date: 20110411
  Serious: No
  Sender: FDA-Public Use
  Company Number: US-AMGEN-KDL418089

PATIENT

DRUGS (10)
  1. ENBREL [Suspect]
     Indication: RHEUMATOID ARTHRITIS
     Dosage: UNK UNK, QD
     Route: 058
     Dates: start: 20100101, end: 20100101
  2. PYRIDOSTIGMINE BROMIDE [Concomitant]
     Dosage: 60 MG, TID
     Route: 048
     Dates: start: 19660101
  3. METHOTREXATE [Concomitant]
     Dosage: 15 MG, QWK
     Dates: start: 20090801
  4. PREDNISONE [Concomitant]
     Dosage: 2.5 MG, QD
     Dates: start: 20090801
  5. ATORVASTATIN CALCIUM [Concomitant]
     Dosage: UNK UNK, QD
     Route: 048
     Dates: start: 20000101
  6. CALCIUM [Concomitant]
  7. IRON [Concomitant]
  8. MULTI-VITAMINS [Concomitant]
  9. VESICARE [Concomitant]
     Dosage: UNK UNK, QD
     Dates: start: 20100101
  10. UNSPECIFIED MEDICATION [Concomitant]
     Dosage: 4 MG, QD

REACTIONS (2)
  - CONSTIPATION [None]
  - ORAL HERPES [None]
